FAERS Safety Report 11320170 (Version 2)
Quarter: 2015Q3

REPORT INFORMATION
  Report Type: Spontaneous
  Country: US (occurrence: US)
  Receive Date: 20150729
  Receipt Date: 20150821
  Transmission Date: 20151125
  Serious: Yes (Other)
  Sender: FDA-Public Use
  Company Number: US-BAYER-2015-386556

PATIENT
  Age: 31 Year
  Sex: Female

DRUGS (2)
  1. MIRENA [Suspect]
     Active Substance: LEVONORGESTREL
     Indication: CONTRACEPTION
     Dosage: 20 MCG/24HR, CONT
     Route: 015
     Dates: start: 20131213, end: 20150720
  2. MIRENA [Suspect]
     Active Substance: LEVONORGESTREL
     Indication: CONTRACEPTION
     Dosage: 20 MCG/24HR, CONT
     Route: 015
     Dates: start: 20100608, end: 20111129

REACTIONS (19)
  - Genital haemorrhage [None]
  - Abdominal distension [None]
  - Pain [None]
  - Urine output decreased [None]
  - Vaginal haemorrhage [None]
  - Pelvic pain [None]
  - Vaginal haemorrhage [None]
  - Ovarian cyst [None]
  - Urinary tract infection [None]
  - Abdominal pain lower [None]
  - Vaginal haemorrhage [None]
  - Menstruation irregular [None]
  - Polymenorrhoea [None]
  - Abdominal pain lower [None]
  - Genital haemorrhage [None]
  - Menstruation delayed [None]
  - Micturition urgency [None]
  - Burning sensation [None]
  - Micturition disorder [None]

NARRATIVE: CASE EVENT DATE: 20100608
